FAERS Safety Report 5009704-3 (Version None)
Quarter: 2006Q2

REPORT INFORMATION
  Report Type: 
  Country: None (occurrence: None)
  Receive Date: 20060524
  Receipt Date: 20060427
  Transmission Date: 20061013
  Serious: Yes (Hospitalization)
  Sender: FDA-Public Use
  Company Number: JP-MERCK-0604USA04231

PATIENT
  Age: 28 Year
  Sex: Male

DRUGS (5)
  1. PEPCID RPD [Suspect]
     Indication: GASTROENTERITIS
     Route: 048
     Dates: start: 20050208, end: 20050212
  2. CHLORHEXIDINE HYDROCHLORIDE [Suspect]
     Indication: TONSILLITIS
     Route: 048
     Dates: start: 20050208, end: 20050212
  3. DASEN [Suspect]
     Indication: TONSILLITIS
     Route: 048
     Dates: start: 20050208, end: 20050212
  4. [THERAPY UNSPECIFIED] [Suspect]
     Indication: TONSILLITIS
     Route: 048
     Dates: start: 20050208, end: 20050212
  5. LOXONIN [Suspect]
     Indication: TONSILLITIS
     Route: 065
     Dates: start: 20050208, end: 20050212

REACTIONS (1)
  - ERYTHEMA MULTIFORME [None]
